FAERS Safety Report 4597603-0 (Version None)
Quarter: 2005Q1

REPORT INFORMATION
  Report Type: 
  Country: None (occurrence: None)
  Receive Date: 20050228
  Receipt Date: 20050228
  Transmission Date: 20050727
  Serious: Yes (Hospitalization)
  Sender: FDA-Public Use
  Company Number: None

PATIENT
  Sex: Male

DRUGS (21)
  1. FENTANYL [Suspect]
     Indication: ENDOSCOPIC RETROGRADE CHOLANGIOPANCREATOGRAPHY
     Dosage: 350 MCG
     Dates: start: 20040521, end: 20040521
  2. MIDAZOLAM [Suspect]
     Indication: ENDOSCOPIC RETROGRADE CHOLANGIOPANCREATOGRAPHY
     Dosage: 7 MG
     Dates: start: 20040521, end: 20040521
  3. GLUCAGON [Concomitant]
  4. ALENDRONATE SODIUM [Concomitant]
  5. AMYLASE/LIPASE/PROTEASE [Concomitant]
  6. BISMUTH SUBSALICYLATE/CALCIUM CARBONATE [Concomitant]
  7. CALCIUM CARBONATE/VIT D [Concomitant]
  8. CLONIDINE [Concomitant]
  9. DOCUSATE [Concomitant]
  10. FOSINOPRIL [Concomitant]
  11. FUROSEMIDE [Concomitant]
  12. GABAPENTIN [Concomitant]
  13. INSULIN [Concomitant]
  14. METOPROLOL [Concomitant]
  15. METRONIDAZOLE [Concomitant]
  16. MORPHINE [Concomitant]
  17. OMEPRAZOLE [Concomitant]
  18. PROMETHAZINE [Concomitant]
  19. SENNA [Concomitant]
  20. TETRACYCLINE [Concomitant]
  21. TRAZODONE HCL [Concomitant]

REACTIONS (2)
  - BRADYCARDIA [None]
  - PROCEDURAL COMPLICATION [None]
